FAERS Safety Report 12631859 (Version 3)
Quarter: 2016Q3

REPORT INFORMATION
  Report Type: Spontaneous
  Country: US (occurrence: US)
  Receive Date: 20160808
  Receipt Date: 20160819
  Transmission Date: 20161109
  Serious: No
  Sender: FDA-Public Use
  Company Number: US-BEH-2016061267

PATIENT
  Sex: Female
  Weight: 72.58 kg

DRUGS (31)
  1. HIZENTRA [Suspect]
     Active Substance: HUMAN IMMUNOGLOBULIN G
     Indication: IMMUNODEFICIENCY COMMON VARIABLE
     Route: 058
  2. LIDOCAINE. [Concomitant]
     Active Substance: LIDOCAINE
  3. EPIPEN [Concomitant]
     Active Substance: EPINEPHRINE
  4. IPRATROPIUM BROMIDE. [Concomitant]
     Active Substance: IPRATROPIUM BROMIDE
  5. PROZAC [Concomitant]
     Active Substance: FLUOXETINE HYDROCHLORIDE
  6. HIZENTRA [Suspect]
     Active Substance: HUMAN IMMUNOGLOBULIN G
     Route: 058
  7. AMLODIPINE BESYLATE. [Concomitant]
     Active Substance: AMLODIPINE BESYLATE
  8. KLONOPIN [Concomitant]
     Active Substance: CLONAZEPAM
  9. VITAMIN B12 [Concomitant]
     Active Substance: CYANOCOBALAMIN
  10. VITAMIN D3 [Concomitant]
     Active Substance: CHOLECALCIFEROL
  11. HIZENTRA [Suspect]
     Active Substance: HUMAN IMMUNOGLOBULIN G
     Dosage: 15 G, QW
     Route: 058
     Dates: start: 201411
  12. ACETAMINOPHEN. [Concomitant]
     Active Substance: ACETAMINOPHEN
  13. EPIPEN [Concomitant]
     Active Substance: EPINEPHRINE
  14. FOLIC ACID. [Concomitant]
     Active Substance: FOLIC ACID
  15. PROAIR HFA [Concomitant]
     Active Substance: ALBUTEROL SULFATE
  16. BIOTIN [Concomitant]
     Active Substance: BIOTIN
  17. HIZENTRA [Suspect]
     Active Substance: HUMAN IMMUNOGLOBULIN G
     Route: 058
  18. METHOTREXATE. [Concomitant]
     Active Substance: METHOTREXATE
  19. POTASSIUM CHLORIDE. [Concomitant]
     Active Substance: POTASSIUM CHLORIDE
  20. ALBUTEROL. [Concomitant]
     Active Substance: ALBUTEROL
  21. LIDOCAINE/PRILOCAINE [Concomitant]
     Active Substance: LIDOCAINE\PRILOCAINE
  22. MINOCYLINE [Concomitant]
  23. FLUTICASONE [Concomitant]
     Active Substance: FLUTICASONE\FLUTICASONE PROPIONATE
  24. HYDROCHLOROTHIAZIDE. [Concomitant]
     Active Substance: HYDROCHLOROTHIAZIDE
  25. FLORASTOR [Concomitant]
     Active Substance: SACCHAROMYCES CEREVISIAE
  26. DIPHENHYDRAMINE. [Concomitant]
     Active Substance: DIPHENHYDRAMINE
  27. DEXILANT [Concomitant]
     Active Substance: DEXLANSOPRAZOLE
  28. SINGULAIR [Concomitant]
     Active Substance: MONTELUKAST SODIUM
  29. CULTURELLE [Concomitant]
     Active Substance: LACTOBACILLUS RHAMNOSUS
  30. QVAR [Concomitant]
     Active Substance: BECLOMETHASONE DIPROPIONATE
  31. LIPITOR [Concomitant]
     Active Substance: ATORVASTATIN CALCIUM

REACTIONS (3)
  - Rash [Unknown]
  - Weight increased [Unknown]
  - Nausea [Unknown]
